FAERS Safety Report 13194478 (Version 1)
Quarter: 2017Q1

REPORT INFORMATION
  Report Type: Spontaneous
  Country: US (occurrence: US)
  Receive Date: 20170207
  Receipt Date: 20170207
  Transmission Date: 20170428
  Serious: No
  Sender: FDA-Public Use
  Company Number: US-JAZZ-2016-US-000552

PATIENT
  Age: 56 Year
  Sex: Male

DRUGS (2)
  1. PRIALT [Suspect]
     Active Substance: ZICONOTIDE ACETATE
     Indication: PAIN
  2. PRIALT [Suspect]
     Active Substance: ZICONOTIDE ACETATE
     Indication: POST LAMINECTOMY SYNDROME
     Dosage: UNK ?G, QH
     Route: 037
     Dates: start: 201412, end: 201506

REACTIONS (3)
  - Dry mouth [Recovered/Resolved]
  - Mental impairment [Recovered/Resolved]
  - Vision blurred [Recovered/Resolved]

NARRATIVE: CASE EVENT DATE: 201412
